FAERS Safety Report 10017688 (Version 2)
Quarter: 2014Q2

REPORT INFORMATION
  Report Type: Report from Study
  Country: CA (occurrence: CA)
  Receive Date: 20140318
  Receipt Date: 20140508
  Transmission Date: 20141212
  Serious: No
  Sender: FDA-Public Use
  Company Number: CA-ALEXION-A201400795

PATIENT
  Sex: 0

DRUGS (5)
  1. SOLIRIS [Suspect]
     Indication: PAROXYSMAL NOCTURNAL HAEMOGLOBINURIA
     Dosage: 600 MG, EVERY 7 DAYS
     Route: 042
     Dates: start: 20111215, end: 20120105
  2. SOLIRIS [Suspect]
     Dosage: 900 MG, EVERY 14 DAYS
     Route: 042
     Dates: start: 20120112
  3. ZITHROMAX [Concomitant]
     Indication: NASOPHARYNGITIS
     Dosage: 250 MG, BID
     Route: 065
     Dates: start: 20120110
  4. ZITHROMAX [Concomitant]
     Dosage: 250 MG, QD
     Route: 065
     Dates: end: 20120114
  5. FOLIC ACID [Concomitant]
     Indication: SUPPLEMENTATION THERAPY
     Dosage: 5 MG, QD
     Route: 065
     Dates: start: 20080101

REACTIONS (1)
  - Astigmatism [Not Recovered/Not Resolved]
